FAERS Safety Report 4602845-1 (Version None)
Quarter: 2005Q1

REPORT INFORMATION
  Report Type: 
  Country: None (occurrence: None)
  Receive Date: 20050307
  Receipt Date: 20050221
  Transmission Date: 20050727
  Serious: Yes (Other)
  Sender: FDA-Public Use
  Company Number: 805#1#2005-00008

PATIENT
  Age: 33 Year
  Sex: Female

DRUGS (9)
  1. PROSTANDIN-I.V. (ALPROSTADIL ( PAOD) ) [Suspect]
     Dosage: INTRAVENOUS DRIP; SEE IMAGE
     Route: 041
     Dates: start: 20041104, end: 20041108
  2. PROSTANDIN-I.V. (ALPROSTADIL ( PAOD) ) [Suspect]
     Dosage: INTRAVENOUS DRIP; SEE IMAGE
     Route: 041
     Dates: start: 20041124, end: 20041126
  3. PROSTANDIN-I.V. (ALPROSTADIL ( PAOD) ) [Suspect]
     Dosage: INTRAVENOUS DRIP; SEE IMAGE
     Route: 041
     Dates: start: 20041126, end: 20041129
  4. PROSTANDIN-I.V. (ALPROSTADIL ( PAOD) ) [Suspect]
     Dosage: INTRAVENOUS DRIP; SEE IMAGE
     Route: 041
     Dates: start: 20041129, end: 20041201
  5. PROSTANDIN-I.V. (ALPROSTADIL ( PAOD) ) [Suspect]
     Dosage: INTRAVENOUS DRIP; SEE IMAGE
     Route: 041
     Dates: start: 20041201, end: 20041214
  6. AMPICILLIN [Concomitant]
  7. GABEXATE-MESILATE (GABEXATE MESILATE) [Concomitant]
  8. FENTANYL CITRATE [Concomitant]
  9. ULINASTATIN (URINASTATIN) [Concomitant]

REACTIONS (1)
  - APNOEIC ATTACK [None]
